FAERS Safety Report 4578753-1 (Version None)
Quarter: 2005Q1

REPORT INFORMATION
  Report Type: 
  Country: None (occurrence: None)
  Receive Date: 20050211
  Receipt Date: 20040811
  Transmission Date: 20050727
  Serious: Yes (Hospitalization)
  Sender: FDA-Public Use
  Company Number: PHHO2004US11369

PATIENT
  Age: 72 Year
  Sex: Female
  Weight: 66 kg

DRUGS (13)
  1. ZOLEDRONATE [Suspect]
     Indication: METASTASES TO BONE
     Dosage: NO TREATMENT- DELAYED-START ARM
  2. FEMARA [Suspect]
     Indication: BREAST CANCER
     Dosage: 2.5 MG, QD
     Route: 048
     Dates: start: 20021212, end: 20040806
  3. LEVOXYL [Concomitant]
     Indication: THYROIDECTOMY
     Dosage: 1 MG, QD
     Route: 048
     Dates: start: 19820401
  4. PRILOSEC [Concomitant]
     Indication: GASTROOESOPHAGEAL REFLUX DISEASE
     Dosage: QD
     Route: 048
     Dates: start: 19850101
  5. LEXAPRO [Concomitant]
     Indication: DEPRESSION
     Dosage: 10 MG, QD
     Route: 048
     Dates: start: 20040823
  6. ADVAIR DISKUS 100/50 [Concomitant]
     Indication: ASTHMA
     Dates: start: 20030901
  7. FLEXERIL [Concomitant]
     Indication: ARTHRALGIA
     Dosage: 10 MG
     Dates: start: 20040501
  8. ULTRAM [Concomitant]
     Indication: ARTHRALGIA
     Dosage: 50 MG
     Dates: start: 20040701
  9. VIOXX [Suspect]
     Indication: OSTEOARTHRITIS
     Dates: start: 20040701
  10. CALCIUM GLUCONATE [Concomitant]
     Dosage: 600 MG, BID
     Dates: start: 20021201
  11. VITAMIN D [Concomitant]
     Dosage: 400 MG, QD
     Dates: start: 20021201
  12. VICODIN [Concomitant]
     Indication: PAIN
  13. DURAGESIC [Concomitant]
     Indication: PAIN

REACTIONS (15)
  - AORTIC VALVE INCOMPETENCE [None]
  - ASTHENIA [None]
  - CEREBROVASCULAR ACCIDENT [None]
  - CONFUSIONAL STATE [None]
  - DRUG INTERACTION [None]
  - DYSARTHRIA [None]
  - FACIAL PARESIS [None]
  - HYPOAESTHESIA [None]
  - MITRAL VALVE CALCIFICATION [None]
  - MITRAL VALVE INCOMPETENCE [None]
  - NAUSEA [None]
  - THROMBOSIS [None]
  - TRANSIENT ISCHAEMIC ATTACK [None]
  - TRICUSPID VALVE INCOMPETENCE [None]
  - VENTRICULAR HYPERTROPHY [None]
